FAERS Safety Report 9684826 (Version 2)
Quarter: 2014Q1

REPORT INFORMATION
  Report Type: Spontaneous
  Country: LB (occurrence: LB)
  Receive Date: 20131112
  Receipt Date: 20140303
  Transmission Date: 20141002
  Serious: Yes (Other)
  Sender: FDA-Public Use
  Company Number: PHHY2013LB128929

PATIENT
  Sex: Male

DRUGS (3)
  1. CERTICAN [Suspect]
     Dosage: UNK
     Route: 048
  2. CELLCEPT [Concomitant]
     Dosage: UNK UKN, UNK
  3. CORTICOSTEROID NOS [Concomitant]
     Dosage: UNK UKN, UNK

REACTIONS (8)
  - Stevens-Johnson syndrome [Not Recovered/Not Resolved]
  - Skin exfoliation [Unknown]
  - Blister [Unknown]
  - Skin lesion [Unknown]
  - Gingival bleeding [Unknown]
  - Mucosal ulceration [Unknown]
  - Rash [Unknown]
  - Blood creatine increased [Unknown]
